FAERS Safety Report 15301088 (Version 2)
Quarter: 2018Q4

REPORT INFORMATION
  Report Type: Report from Study
  Country: None (occurrence: US)
  Receive Date: 20180821
  Receipt Date: 20181027
  Transmission Date: 20190204
  Serious: Yes (Other)
  Sender: FDA-Public Use
  Company Number: US-ABBVIE-18K-163-2429115-00

PATIENT
  Age: 72 Year
  Sex: Male

DRUGS (13)
  1. PROLIA [Concomitant]
     Active Substance: DENOSUMAB
     Indication: OSTEOPOROSIS
     Route: 050
  2. VENCLEXTA [Suspect]
     Active Substance: VENETOCLAX
     Dosage: 50MG DAILY FOR SEVEN DAYS
     Route: 048
     Dates: start: 20180717, end: 20180723
  3. VENCLEXTA [Suspect]
     Active Substance: VENETOCLAX
     Route: 048
  4. ALLOPURINOL. [Concomitant]
     Active Substance: ALLOPURINOL
     Indication: PRODUCT USED FOR UNKNOWN INDICATION
     Route: 048
  5. PRILOSEC [Concomitant]
     Active Substance: OMEPRAZOLE MAGNESIUM
     Indication: DIVERTICULITIS
     Route: 048
  6. VENCLEXTA [Suspect]
     Active Substance: VENETOCLAX
     Indication: CHRONIC LYMPHOCYTIC LEUKAEMIA
     Dosage: 20MG DAILY FOR SEVEN DAYS
     Route: 048
     Dates: start: 20180710, end: 20180716
  7. VENCLEXTA [Suspect]
     Active Substance: VENETOCLAX
     Route: 048
     Dates: start: 20180807
  8. METOPROLOL. [Concomitant]
     Active Substance: METOPROLOL
     Indication: PRODUCT USED FOR UNKNOWN INDICATION
     Route: 048
  9. ALIGN [Concomitant]
     Active Substance: BIFIDOBACTERIUM LONGUM SUBSP. INFANTIS
     Indication: DIVERTICULITIS
     Route: 048
  10. VENCLEXTA [Suspect]
     Active Substance: VENETOCLAX
     Dosage: 100DAILY FOR SEVEN DAYS
     Route: 048
     Dates: start: 20180724, end: 20180730
  11. CALCIUM [Concomitant]
     Active Substance: CALCIUM
     Indication: OSTEOPOROSIS
     Route: 048
  12. FAMCICLOVIR. [Concomitant]
     Active Substance: FAMCICLOVIR
     Indication: PRODUCT USED FOR UNKNOWN INDICATION
     Route: 048
  13. MAGNESIUM OXIDE. [Concomitant]
     Active Substance: MAGNESIUM OXIDE
     Indication: OSTEOPOROSIS
     Route: 048

REACTIONS (8)
  - White blood cell count decreased [Recovering/Resolving]
  - Constipation [Not Recovered/Not Resolved]
  - Haemoglobin decreased [Not Recovered/Not Resolved]
  - Fatigue [Unknown]
  - Full blood count decreased [Recovering/Resolving]
  - Exercise tolerance decreased [Recovering/Resolving]
  - Platelet count decreased [Recovering/Resolving]
  - Weight fluctuation [Recovering/Resolving]

NARRATIVE: CASE EVENT DATE: 2018
